FAERS Safety Report 17197300 (Version 2)
Quarter: 2020Q3

REPORT INFORMATION
  Report Type: Spontaneous
  Country: DE (occurrence: DE)
  Receive Date: 20191224
  Receipt Date: 20200807
  Transmission Date: 20201102
  Serious: Yes (Other)
  Sender: FDA-Public Use
  Company Number: NVSC2019DE070933

PATIENT
  Age: 1 Day
  Sex: Male
  Weight: 4.19 kg

DRUGS (4)
  1. ANAFRANIL [Suspect]
     Active Substance: CLOMIPRAMINE HYDROCHLORIDE
     Indication: FOETAL EXPOSURE DURING PREGNANCY
     Dosage: MATERNAL DOSE: 75 MG, QD (0 ? 38.4 GESTATIONAL WEEK)
     Route: 064
     Dates: start: 20181031, end: 20190728
  2. CHLORPROTHIXENE [Suspect]
     Active Substance: CHLORPROTHIXENE
     Indication: FOETAL EXPOSURE DURING PREGNANCY
     Dosage: MATERNAL DOSE: 75 [MG/D (BIS 50 MG/D)] (0 ? 38.4 GESTATIONAL WEEK)
     Route: 064
     Dates: start: 20181031, end: 20190728
  3. TAVOR [Concomitant]
     Indication: FOETAL EXPOSURE DURING PREGNANCY
     Dosage: MATERNAL DOSE: APPROXIMATELY ONCE THE WEEK (33.6 ? 38.4 GESTATIONAL WEEK)
     Route: 064
  4. FLUOXETINE HYDROCHLORIDE. [Suspect]
     Active Substance: FLUOXETINE HYDROCHLORIDE
     Indication: FOETAL EXPOSURE DURING PREGNANCY
     Dosage: MATERNAL DOSE: 40 [MG/D (BIS 20 MG/D) ]/ 20 MG/D UNTIL GESTATIONAL WEEK 36, THEN 40 MG/D (0 ? 38.4 G
     Route: 064
     Dates: start: 20181031, end: 20190728

REACTIONS (2)
  - Drug withdrawal syndrome [Recovered/Resolved]
  - Large for dates baby [Unknown]

NARRATIVE: CASE EVENT DATE: 20190728
